FAERS Safety Report 4588763-6 (Version None)
Quarter: 2005Q1

REPORT INFORMATION
  Report Type: 
  Country: None (occurrence: None)
  Receive Date: 20050222
  Receipt Date: 20040116
  Transmission Date: 20050727
  Serious: Yes (Other)
  Sender: FDA-Public Use
  Company Number: 163-20785-03070633 (0)

PATIENT
  Age: 77 Year
  Sex: Male

DRUGS (2)
  1. ALKERAN [Suspect]
     Indication: MULTIPLE MYELOMA
     Dosage: 6MG PER DAY
     Route: 048
  2. THALIDOMIDE [Suspect]
     Dosage: 50MG PER DAY
     Route: 048
     Dates: start: 20030522, end: 20030604

REACTIONS (2)
  - LEUKOPENIA [None]
  - PLATELET COUNT DECREASED [None]
